FAERS Safety Report 8114736-2 (Version None)
Quarter: 2012Q1

REPORT INFORMATION
  Report Type: 
  Country: None (occurrence: None)
  Receive Date: 20120206
  Receipt Date: 20111213
  Transmission Date: 20120608
  Serious: No
  Sender: FDA-Public Use
  Company Number: US-MYLANLABS-2011S1025744

PATIENT
  Age: 53 Year
  Sex: Male
  Weight: 95.26 kg

DRUGS (1)
  1. MORPHINE SULFATE [Suspect]
     Indication: BACK PAIN
     Route: 048
     Dates: start: 20111212

REACTIONS (2)
  - SOMNOLENCE [None]
  - NAUSEA [None]
